FAERS Safety Report 8465348-2 (Version None)
Quarter: 2012Q2

REPORT INFORMATION
  Report Type: 
  Country: None (occurrence: None)
  Receive Date: 20120626
  Receipt Date: 20120622
  Transmission Date: 20120825
  Serious: Yes (Other)
  Sender: FDA-Public Use
  Company Number: PHEH2006US13529

PATIENT
  Sex: Female
  Weight: 75 kg

DRUGS (12)
  1. ALLEGRA [Concomitant]
  2. FLONASE [Concomitant]
  3. ZOMETA [Suspect]
     Indication: MULTIPLE MYELOMA
     Dosage: UNK UKN, EVERY 4 WEEKLY
     Route: 042
     Dates: start: 20030101
  4. VELCADE [Concomitant]
  5. THALIDOMIDE [Concomitant]
     Dosage: UNK UKN, UNK
  6. DECADRON [Concomitant]
     Dosage: UNK UKN, UNK
  7. ATIVAN [Concomitant]
  8. VITAMIN TAB [Concomitant]
  9. CHEMOTHERAPEUTICS,OTHER [Concomitant]
     Dosage: UNK UKN, UNK
     Dates: start: 20030101
  10. AREDIA [Suspect]
  11. CALCIUM [Concomitant]
  12. NEUPOGEN [Concomitant]
     Dosage: UNK UKN, UNK

REACTIONS (45)
  - OSTEONECROSIS OF JAW [None]
  - OEDEMA PERIPHERAL [None]
  - ASTHENIA [None]
  - DIVERTICULUM INTESTINAL [None]
  - BONE DISORDER [None]
  - MASTICATION DISORDER [None]
  - GINGIVAL DISORDER [None]
  - MEGAKARYOCYTES DECREASED [None]
  - ANORECTAL DISORDER [None]
  - NAUSEA [None]
  - MUSCLE SPASMS [None]
  - CYSTOCELE [None]
  - OVARIAN FAILURE [None]
  - OSTEOPENIA [None]
  - ARTHRALGIA [None]
  - EOSINOPHILIA [None]
  - VENOUS INSUFFICIENCY [None]
  - RECTAL POLYP [None]
  - OSTEITIS [None]
  - MOUTH ULCERATION [None]
  - OESOPHAGITIS [None]
  - ACUTE SINUSITIS [None]
  - CORNEAL OPACITY [None]
  - DYSPNOEA [None]
  - COMPRESSION FRACTURE [None]
  - PAIN IN JAW [None]
  - FAECAL INCONTINENCE [None]
  - EYE BURNS [None]
  - OSTEOPOROSIS [None]
  - JAW DISORDER [None]
  - PANCYTOPENIA [None]
  - RECTOCELE [None]
  - PLATELET COUNT INCREASED [None]
  - PAIN IN EXTREMITY [None]
  - STRESS URINARY INCONTINENCE [None]
  - BONE LESION [None]
  - QRS AXIS ABNORMAL [None]
  - COLON ADENOMA [None]
  - INSPIRATORY CAPACITY DECREASED [None]
  - HYPERCHOLESTEROLAEMIA [None]
  - UTERINE PROLAPSE [None]
  - IMPAIRED HEALING [None]
  - PYREXIA [None]
  - ATELECTASIS [None]
  - CORONARY ARTERY DISEASE [None]
